FAERS Safety Report 6114533-3 (Version None)
Quarter: 2009Q1

REPORT INFORMATION
  Report Type: 
  Country: None (occurrence: None)
  Receive Date: 20090313
  Receipt Date: 20090301
  Transmission Date: 20090719
  Serious: Yes (Hospitalization)
  Sender: FDA-Public Use
  Company Number: US-BAUSCH-2009BL000995

PATIENT
  Age: 65 Year
  Sex: Male

DRUGS (11)
  1. CIPROFLOXACIN [Suspect]
     Indication: CELLULITIS
     Route: 048
     Dates: start: 20061101, end: 20061101
  2. FUROSEMIDE [Concomitant]
     Route: 030
     Dates: start: 20061101
  3. FUROSEMIDE [Concomitant]
     Dates: start: 20061101
  4. LISINOPRIL [Concomitant]
  5. METOPROLOL - SLOW RELEASE [Concomitant]
  6. WARFARIN SODIUM [Concomitant]
  7. SIMVASTATIN [Concomitant]
     Dates: start: 19900101
  8. NIACIN [Concomitant]
     Dates: start: 19900101
  9. FOLIC ACID [Concomitant]
  10. POTASSIUM CHLORIDE [Concomitant]
  11. MULTI-VITAMINS [Concomitant]

REACTIONS (8)
  - ACUTE HEPATIC FAILURE [None]
  - CHOLESTASIS [None]
  - ERYTHEMA [None]
  - HAEMODIALYSIS [None]
  - INTERNATIONAL NORMALISED RATIO INCREASED [None]
  - PLATELET COUNT DECREASED [None]
  - RENAL FAILURE ACUTE [None]
  - SKIN LESION [None]
